FAERS Safety Report 6587953-0 (Version None)
Quarter: 2010Q1

REPORT INFORMATION
  Report Type: 
  Country: None (occurrence: None)
  Receive Date: 20100218
  Receipt Date: 20100209
  Transmission Date: 20100710
  Serious: No
  Sender: FDA-Public Use
  Company Number: FR-BRISTOL-MYERS SQUIBB COMPANY-12999652

PATIENT
  Age: 58 Year
  Sex: Male

DRUGS (27)
  1. CETUXIMAB [Suspect]
     Indication: COLORECTAL CANCER METASTATIC
     Dosage: MOST RECENT CETUXIMAB INFUSION ADMINISTERED ON 24-MAY-2005 (5TH).
     Route: 041
     Dates: start: 20050420
  2. IRINOTECAN HCL [Suspect]
     Indication: COLORECTAL CANCER METASTATIC
     Dosage: MOST RECENT IRINOTECAN INFUSION ADMINISTERED ON 17-MAY-2005 (3RD).
     Route: 042
     Dates: start: 20050420
  3. FOLINIC ACID [Suspect]
     Indication: COLORECTAL CANCER METASTATIC
     Dosage: MOST RECENT FOLINIC ACID INFUSION ADMINISTERED ON 18-MAY-2005 (3RD).
     Route: 042
     Dates: start: 20050420
  4. FLUOROURACIL [Suspect]
     Indication: COLORECTAL CANCER METASTATIC
     Dosage: MOST RECENT FLUOROURACIL INFUSION ADMINISTERED ON 18-MAY-2005 (3RD).
     Route: 042
     Dates: start: 20050420
  5. SPASFON [Concomitant]
  6. RANITIDINE [Concomitant]
  7. DEBRIDAT [Concomitant]
  8. BICARBONATE [Concomitant]
  9. FUNGIZONE [Concomitant]
  10. DURAGESIC-100 [Concomitant]
  11. ATENOL [Concomitant]
  12. LASILIX [Concomitant]
  13. IMODIUM [Concomitant]
  14. STILNOX [Concomitant]
  15. TICARCILLIN [Concomitant]
  16. BROMAZEPAM [Concomitant]
  17. AMIKACIN SULFATE [Concomitant]
  18. METHYLPREDNISOLONE [Concomitant]
  19. VANCOMYCIN [Concomitant]
  20. NEFOPAM HCL [Concomitant]
  21. ACTRAPID [Concomitant]
  22. FLUCONAZOLE [Concomitant]
  23. LEVOFLOXACIN [Concomitant]
  24. MORPHINE SULFATE [Concomitant]
  25. ALUMINUM HYDROXIDE AND MAGNESIUM TRISILICATE [Concomitant]
  26. NEXIUM [Concomitant]
  27. LOVENOX [Concomitant]

REACTIONS (2)
  - FEBRILE BONE MARROW APLASIA [None]
  - ORAL CANDIDIASIS [None]
